FAERS Safety Report 26025215 (Version 1)
Quarter: 2025Q4

REPORT INFORMATION
  Report Type: Spontaneous
  Country: US (occurrence: US)
  Receive Date: 20251111
  Receipt Date: 20251111
  Transmission Date: 20260117
  Serious: Yes (Life-Threatening, Hospitalization, Other)
  Sender: SANOFI AVENTIS
  Company Number: US-SA-2025SA334481

PATIENT
  Age: 69 Year
  Sex: Male

DRUGS (2)
  1. DUPIXENT [Suspect]
     Active Substance: DUPILUMAB
     Route: 065
  2. ACTEMRA [Concomitant]
     Active Substance: TOCILIZUMAB

REACTIONS (13)
  - Cardiac failure [Unknown]
  - COVID-19 [Unknown]
  - Cardiac disorder [Unknown]
  - Atrial fibrillation [Unknown]
  - Hospitalisation [Unknown]
  - Rheumatoid arthritis [Unknown]
  - Exposure to toxic agent [Unknown]
  - Chronic obstructive pulmonary disease [Unknown]
  - Hypercapnia [Unknown]
  - General physical health deterioration [Unknown]
  - Condition aggravated [Unknown]
  - Emphysema [Unknown]
  - Anaemia [Unknown]

NARRATIVE: CASE EVENT DATE: 20240101
